FAERS Safety Report 8396996-6 (Version None)
Quarter: 2012Q2

REPORT INFORMATION
  Report Type: 
  Country: None (occurrence: None)
  Receive Date: 20120530
  Receipt Date: 20120518
  Transmission Date: 20120825
  Serious: Yes (Other)
  Sender: FDA-Public Use
  Company Number: GR-PFIZER INC-2006129069

PATIENT
  Age: 45 Year
  Sex: Female

DRUGS (3)
  1. VOLTAREN [Concomitant]
     Indication: PAIN
  2. NEURONTIN [Suspect]
     Indication: TRIGEMINAL NEURALGIA
     Dosage: 300 MG, 2X/DAY
     Route: 048
     Dates: start: 20061006, end: 20061012
  3. LONARID [Concomitant]
     Indication: PAIN

REACTIONS (7)
  - POLYURIA [None]
  - BLOOD CREATINE PHOSPHOKINASE INCREASED [None]
  - MUSCULAR WEAKNESS [None]
  - MUSCLE SPASMS [None]
  - MYALGIA [None]
  - RHABDOMYOLYSIS [None]
  - FATIGUE [None]
